FAERS Safety Report 7151430-9 (Version None)
Quarter: 2010Q4

REPORT INFORMATION
  Report Type: 
  Country: None (occurrence: None)
  Receive Date: 20101210
  Receipt Date: 20101206
  Transmission Date: 20110411
  Serious: Yes (Life-Threatening, Hospitalization, Other)
  Sender: FDA-Public Use
  Company Number: FR-B.I. PHARMACEUTICALS,INC./RIDGEFIELD-2010-FF-00834FF

PATIENT
  Sex: Female
  Weight: 96 kg

DRUGS (4)
  1. VIRAMUNE [Suspect]
     Indication: HIV INFECTION
     Dosage: 200 MG
     Route: 048
     Dates: start: 20100907
  2. VIRAMUNE [Suspect]
     Dosage: 400 MG
     Route: 048
     Dates: end: 20101011
  3. KIVEXA [Concomitant]
     Indication: HIV INFECTION
     Dosage: 600MG + 300MG DAILY
     Route: 048
     Dates: start: 20080526, end: 20101011
  4. KALETRA [Concomitant]
     Indication: HIV INFECTION
     Dosage: 10 ML
     Route: 048
     Dates: start: 20101012, end: 20101022

REACTIONS (3)
  - BACTERIAL PYELONEPHRITIS [None]
  - PULMONARY EMBOLISM [None]
  - STEVENS-JOHNSON SYNDROME [None]
